FAERS Safety Report 5033572-7 (Version None)
Quarter: 2006Q2

REPORT INFORMATION
  Report Type: 
  Country: None (occurrence: None)
  Receive Date: 20060623
  Receipt Date: 20060613
  Transmission Date: 20061013
  Serious: Yes (Other)
  Sender: FDA-Public Use
  Company Number: US-ROCHE-451866

PATIENT
  Sex: Male

DRUGS (1)
  1. ACCUTANE [Suspect]
     Indication: DRUG USE FOR UNKNOWN INDICATION
     Route: 065
     Dates: start: 20030115

REACTIONS (18)
  - ABDOMINAL INJURY [None]
  - ABDOMINAL PAIN [None]
  - ARTHRALGIA [None]
  - BILIARY TRACT DISORDER [None]
  - BONE PAIN [None]
  - COLITIS [None]
  - DYSPEPSIA [None]
  - GALLBLADDER INJURY [None]
  - GASTROINTESTINAL INJURY [None]
  - INJURY [None]
  - IRRITABLE BOWEL SYNDROME [None]
  - JOINT INJURY [None]
  - MULTI-ORGAN DISORDER [None]
  - MUSCLE INJURY [None]
  - MYALGIA [None]
  - PANCREATIC INJURY [None]
  - PANCREATITIS [None]
  - SKELETAL INJURY [None]
